FAERS Safety Report 21900098 (Version 1)
Quarter: 2023Q1

REPORT INFORMATION
  Report Type: Spontaneous
  Country: US (occurrence: None)
  Receive Date: 20230123
  Receipt Date: 20230123
  Transmission Date: 20230417
  Serious: Yes (Disabling, Other)
  Sender: FDA-Public Use
  Company Number: None

PATIENT
  Age: 52 Year
  Sex: Female
  Weight: 90 kg

DRUGS (2)
  1. STELARA [Suspect]
     Active Substance: USTEKINUMAB
     Indication: Crohn^s disease
     Dates: start: 20210624
  2. ONE-A-DAY MULTIVITAMIN [Concomitant]

REACTIONS (4)
  - Extranodal marginal zone B-cell lymphoma (MALT type) [None]
  - Lymphoma [None]
  - Breast cancer [None]
  - Metastases to spine [None]

NARRATIVE: CASE EVENT DATE: 20220929
